FAERS Safety Report 18145414 (Version 1)
Quarter: 2020Q3

REPORT INFORMATION
  Report Type: Report from Study
  Country: GB (occurrence: GB)
  Receive Date: 20200813
  Receipt Date: 20200813
  Transmission Date: 20201103
  Serious: Yes (Other)
  Sender: FDA-Public Use
  Company Number: NVSC2020GB087658

PATIENT
  Sex: Male

DRUGS (1)
  1. HYRIMOZ [Suspect]
     Active Substance: ADALIMUMAB-ADAZ
     Indication: UVEITIS
     Dosage: UNK, Q2W
     Route: 065

REACTIONS (9)
  - Chest discomfort [Unknown]
  - Pain [Unknown]
  - COVID-19 [Unknown]
  - Nasopharyngitis [Unknown]
  - Tremor [Unknown]
  - Back pain [Unknown]
  - Hypersomnia [Unknown]
  - Dyspnoea [Unknown]
  - Pain of skin [Unknown]
